FAERS Safety Report 9216621 (Version 2)
Quarter: 2013Q2

REPORT INFORMATION
  Report Type: Spontaneous
  Country: BR (occurrence: BR)
  Receive Date: 20130408
  Receipt Date: 20130513
  Transmission Date: 20140414
  Serious: Yes (Death, Other)
  Sender: FDA-Public Use
  Company Number: BR-PFIZER INC-2013108328

PATIENT
  Age: 78 Year
  Sex: Male
  Weight: 92 kg

DRUGS (18)
  1. LYRICA [Suspect]
     Indication: NEUROPATHY PERIPHERAL
     Dosage: 75 MG, 2X/DAY
     Dates: start: 20120208
  2. LYRICA [Suspect]
     Indication: NEUROPATHY PERIPHERAL
     Dosage: 75 MG, 1X/DAY
     Dates: start: 201210
  3. LYRICA [Suspect]
     Dosage: UNK
     Route: 048
     Dates: start: 201209
  4. RIVOTRIL [Concomitant]
     Dosage: UNK
  5. ICTUS [Concomitant]
     Dosage: UNK
  6. ISOSORBIDE [Concomitant]
  7. INSULIN [Concomitant]
     Dosage: UNK
  8. OSCAL [Concomitant]
  9. NEUTROFER [Concomitant]
     Dosage: UNK
  10. FOLIC ACID [Concomitant]
     Dosage: UNK
  11. ALLOPURINOL [Concomitant]
     Dosage: UNK
  12. CLOPIDOGREL [Concomitant]
     Dosage: UNK
  13. PLAVIX [Concomitant]
     Dosage: UNK
  14. PRESSAT [Concomitant]
     Dosage: UNK
  15. SIMVASTATIN [Concomitant]
     Dosage: UNK
  16. IRON [Concomitant]
     Dosage: UNK
  17. OSCAL D [Concomitant]
     Dosage: UNK
  18. ASPIRINA PREVENT [Concomitant]
     Dosage: UNK

REACTIONS (1)
  - Infarction [Fatal]
